FAERS Safety Report 23905901 (Version 1)
Quarter: 2024Q2

REPORT INFORMATION
  Report Type: Spontaneous
  Country: US (occurrence: US)
  Receive Date: 20240527
  Receipt Date: 20240527
  Transmission Date: 20240715
  Serious: Yes (Hospitalization, Other)
  Sender: FDA-Public Use
  Company Number: US-SA-2024SA155917

PATIENT
  Sex: Female

DRUGS (2)
  1. ENOXAPARIN SODIUM [Suspect]
     Active Substance: ENOXAPARIN SODIUM
     Indication: Prophylaxis
     Dosage: UNK
     Dates: start: 2014
  2. RIBAVIRIN [Concomitant]
     Active Substance: RIBAVIRIN
     Indication: Chronic hepatitis C
     Dosage: UNK

REACTIONS (2)
  - Cauda equina syndrome [Unknown]
  - Spinal cord haematoma [Unknown]

NARRATIVE: CASE EVENT DATE: 20140101
